FAERS Safety Report 10979453 (Version 1)
Quarter: 2015Q2

REPORT INFORMATION
  Report Type: Report from Study
  Country: US (occurrence: US)
  Receive Date: 20150402
  Receipt Date: 20150402
  Transmission Date: 20150821
  Serious: Yes (Other)
  Sender: FDA-Public Use
  Company Number: US-BAYER-2015-084687

PATIENT
  Age: 89 Year
  Sex: Male

DRUGS (2)
  1. NEXAVAR [Suspect]
     Active Substance: SORAFENIB
     Indication: HEPATIC CANCER
     Dosage: 200 MG, BID
     Dates: start: 20150303, end: 20150325
  2. CISPLATIN. [Suspect]
     Active Substance: CISPLATIN
     Dosage: UNK
     Route: 042
     Dates: start: 20150212

REACTIONS (9)
  - Back pain [None]
  - Muscle spasms [None]
  - Diarrhoea [None]
  - Blood pressure increased [None]
  - Drug dose omission [None]
  - Lethargy [None]
  - Confusional state [None]
  - Neck pain [None]
  - Dehydration [None]
